FAERS Safety Report 4974145-1 (Version None)
Quarter: 2006Q2

REPORT INFORMATION
  Report Type: 
  Country: None (occurrence: None)
  Receive Date: 20060417
  Receipt Date: 20051115
  Transmission Date: 20061013
  Serious: Yes (Death, Hospitalization)
  Sender: FDA-Public Use
  Company Number: US-MERCK-0511USA02506

PATIENT
  Age: 83 Year
  Sex: Female

DRUGS (1)
  1. VIOXX [Suspect]
     Route: 048
     Dates: start: 19990101, end: 20011001

REACTIONS (3)
  - DEMENTIA ALZHEIMER'S TYPE [None]
  - PULMONARY EMBOLISM [None]
  - SUBDURAL HAEMATOMA [None]
